FAERS Safety Report 12483667 (Version 1)
Quarter: 2016Q2

REPORT INFORMATION
  Report Type: Spontaneous
  Country: US (occurrence: None)
  Receive Date: 20160620
  Receipt Date: 20160620
  Transmission Date: 20160815
  Serious: No
  Sender: FDA-Public Use
  Company Number: None

PATIENT
  Age: 71 Year
  Sex: Male

DRUGS (1)
  1. DAPTOMYCIN 500MG CUBIST [Suspect]
     Active Substance: DAPTOMYCIN
     Indication: CELLULITIS
     Dosage: 500MG Q24 HOURS IV PUSH
     Route: 042
     Dates: start: 20160527

REACTIONS (3)
  - Dyspnoea [None]
  - Hypersensitivity [None]
  - Dysphagia [None]

NARRATIVE: CASE EVENT DATE: 20160527
